FAERS Safety Report 25895489 (Version 1)
Quarter: 2025Q4

REPORT INFORMATION
  Report Type: Spontaneous
  Country: US (occurrence: US)
  Receive Date: 20251008
  Receipt Date: 20251008
  Transmission Date: 20260117
  Serious: No
  Sender: MERCK SHARP & DOHME LLC
  Company Number: US-009507513-2334133

PATIENT
  Sex: Female
  Weight: 59.874 kg

DRUGS (53)
  1. SOTATERCEPT [Suspect]
     Active Substance: SOTATERCEPT
  2. SOTATERCEPT [Suspect]
     Active Substance: SOTATERCEPT
  3. SOTATERCEPT [Suspect]
     Active Substance: SOTATERCEPT
  4. SOTATERCEPT [Suspect]
     Active Substance: SOTATERCEPT
  5. LOPERAMIDE [Concomitant]
     Active Substance: LOPERAMIDE
  6. ALBUTEROL\IPRATROPIUM [Concomitant]
     Active Substance: ALBUTEROL\IPRATROPIUM
  7. MIDODRINE HYDROCHLORIDE [Concomitant]
     Active Substance: MIDODRINE HYDROCHLORIDE
  8. PREDNISONE [Concomitant]
     Active Substance: PREDNISONE
  9. hydrocortisone sod succinate [Concomitant]
  10. EPINEPHRINE [Concomitant]
     Active Substance: EPINEPHRINE
  11. ALBUTEROL SULFATE [Concomitant]
     Active Substance: ALBUTEROL SULFATE
  12. MAGNESIUM [Concomitant]
     Active Substance: MAGNESIUM
  13. DIETARY SUPPLEMENT\HERBALS\MILK THISTLE [Concomitant]
     Active Substance: MILK THISTLE
  14. VITAMINS [Concomitant]
     Active Substance: VITAMINS
  15. PROLIA [Concomitant]
     Active Substance: DENOSUMAB
  16. Optimal D3 [Concomitant]
  17. MIRTAZAPINE [Concomitant]
     Active Substance: MIRTAZAPINE
  18. EZETIMIBE [Concomitant]
     Active Substance: EZETIMIBE
  19. ALBUTEROL SULFATE [Concomitant]
     Active Substance: ALBUTEROL SULFATE
  20. TRESIBA [Concomitant]
     Active Substance: INSULIN DEGLUDEC
  21. POTASSIUM CHLORIDE [Concomitant]
     Active Substance: POTASSIUM CHLORIDE
  22. cholecalciferol crystals [Concomitant]
  23. ACETAMINOPHEN [Concomitant]
     Active Substance: ACETAMINOPHEN
  24. JARDIANCE [Concomitant]
     Active Substance: EMPAGLIFLOZIN
  25. FAMOTIDINE [Concomitant]
     Active Substance: FAMOTIDINE
  26. SERTRALINE HYDROCHLORIDE [Concomitant]
     Active Substance: SERTRALINE HYDROCHLORIDE
  27. LASIX [Concomitant]
     Active Substance: FUROSEMIDE
  28. ALENDRONATE SODIUM [Concomitant]
     Active Substance: ALENDRONATE SODIUM
  29. vios aerosol delivery system [Concomitant]
  30. ATORVASTATIN CALCIUM [Concomitant]
     Active Substance: ATORVASTATIN CALCIUM
  31. SILDENAFIL CITRATE [Concomitant]
     Active Substance: SILDENAFIL CITRATE
  32. ASPIRIN [Concomitant]
     Active Substance: ASPIRIN
  33. LEVOFLOXACIN [Concomitant]
     Active Substance: LEVOFLOXACIN
  34. TRAMADOL HCL [Concomitant]
     Active Substance: TRAMADOL HYDROCHLORIDE
  35. NITROFURANTOIN [Concomitant]
     Active Substance: NITROFURANTOIN
  36. LISINOPRIL [Concomitant]
     Active Substance: LISINOPRIL
  37. FLUCONAZOLE [Concomitant]
     Active Substance: FLUCONAZOLE
  38. LINEZOLID [Concomitant]
     Active Substance: LINEZOLID
  39. MOXIFLOXACIN [Concomitant]
     Active Substance: MOXIFLOXACIN
  40. OFEV [Concomitant]
     Active Substance: NINTEDANIB
  41. SPIRONOLACTONE [Concomitant]
     Active Substance: SPIRONOLACTONE
  42. VENTOLIN HFA [Concomitant]
     Active Substance: ALBUTEROL SULFATE
  43. SITAGLIPTIN [Concomitant]
     Active Substance: SITAGLIPTIN
  44. FUROSEMIDE [Concomitant]
     Active Substance: FUROSEMIDE
  45. TRAZODONE HCL [Concomitant]
     Active Substance: TRAZODONE HYDROCHLORIDE
  46. MECLIZINE HYDROCHLORIDE [Concomitant]
     Active Substance: MECLIZINE HYDROCHLORIDE
  47. AZITHROMYCIN [Concomitant]
     Active Substance: AZITHROMYCIN
  48. TRIAMCINOLONE ACETONIDE [Concomitant]
     Active Substance: TRIAMCINOLONE ACETONIDE
  49. ONDANSETRON HYDROCHLORIDE [Concomitant]
     Active Substance: ONDANSETRON HYDROCHLORIDE
  50. DIPHENHYDRAMINE HYDROCHLORIDE [Concomitant]
     Active Substance: DIPHENHYDRAMINE HYDROCHLORIDE
  51. BENZONATATE [Concomitant]
     Active Substance: BENZONATATE
  52. TYVASO [Concomitant]
     Active Substance: TREPROSTINIL
  53. JANUVIA [Concomitant]
     Active Substance: SITAGLIPTIN PHOSPHATE

REACTIONS (1)
  - Adverse event [Unknown]
